FAERS Safety Report 5402233-4 (Version None)
Quarter: 2007Q3

REPORT INFORMATION
  Report Type: 
  Country: None (occurrence: None)
  Receive Date: 20070727
  Receipt Date: 20061207
  Transmission Date: 20080115
  Serious: Yes (Hospitalization)
  Sender: FDA-Public Use
  Company Number: THYM-11163

PATIENT
  Age: 60 Year
  Sex: Female
  Weight: 103 kg

DRUGS (21)
  1. THYMOGLOBULIN [Suspect]
     Indication: LIVER TRANSPLANT
     Dosage: 159 MG QD; IV
     Route: 042
     Dates: start: 20061018, end: 20061018
  2. THYMOGLOBULIN [Suspect]
     Indication: LIVER TRANSPLANT
     Dosage: 80 MG QD; IV
     Route: 042
     Dates: start: 20061019, end: 20061020
  3. THYMOGLOBULIN [Suspect]
     Indication: LIVER TRANSPLANT
     Dosage: 85.5 MG QD; IV
     Route: 042
     Dates: start: 20061022, end: 20061022
  4. THYMOGLOBULIN [Suspect]
     Indication: LIVER TRANSPLANT
     Dosage: 75 MG QD; IV
     Route: 042
     Dates: start: 20061024, end: 20061024
  5. PROGRAF [Concomitant]
  6. CELLCEPT [Concomitant]
  7. BACTRIM [Concomitant]
  8. VALCYTE [Concomitant]
  9. FLUCONAZOLE [Concomitant]
  10. LASIX [Concomitant]
  11. NPH INSULIN [Concomitant]
  12. NOVOLOG [Concomitant]
  13. DIOCTYL SODIUM SULFOSUCCINATE [Concomitant]
  14. MAGNESIUM PLUS [Concomitant]
  15. ACTIGALL [Concomitant]
  16. PRILOSEC [Concomitant]
  17. LOPRESSOR [Concomitant]
  18. LEVOTHYROXINE SODIUM [Concomitant]
  19. NORVASC [Concomitant]
  20. KEPPRA [Concomitant]
  21. MULTI-VITAMIN [Concomitant]

REACTIONS (3)
  - ANASTOMOTIC STENOSIS [None]
  - HAEMANGIOMA OF LIVER [None]
  - IMMUNOSUPPRESSANT DRUG LEVEL INCREASED [None]
